FAERS Safety Report 8962985 (Version 1)
Quarter: 2012Q4

REPORT INFORMATION
  Report Type: 
  Country: JP (occurrence: JP)
  Receive Date: 20121213
  Receipt Date: 20121213
  Transmission Date: 20130627
  Serious: Yes (Hospitalization)
  Sender: FDA-Public Use
  Company Number: JP-009507513-2012SP009032

PATIENT
  Age: 63 Year
  Sex: Female
  Weight: 53 kg

DRUGS (9)
  1. PEGINTRON [Suspect]
     Indication: CHRONIC HEPATITIS C
     Dosage: 80 Microgram, qw
     Route: 058
     Dates: start: 20111209
  2. REBETOL [Suspect]
     Indication: CHRONIC HEPATITIS C
     Dosage: 600 mg, qd
     Route: 048
     Dates: start: 20111209, end: 20111229
  3. REBETOL [Suspect]
     Dosage: 400 mg/ 2 Days
     Route: 048
     Dates: start: 20111230, end: 20120105
  4. REBETOL [Suspect]
     Dosage: 600 mg/ 2 days
     Route: 048
     Dates: start: 20111231, end: 20120106
  5. REBETOL [Suspect]
     Dosage: 400 mg, qd
     Route: 048
     Dates: start: 20120107
  6. TELAVIC [Suspect]
     Indication: CHRONIC HEPATITIS C
     Dosage: 2250 mg, qd
     Route: 048
     Dates: start: 20111209
  7. MAGLAX (MAGNESIUM OXIDE) [Concomitant]
     Indication: LARGE INTESTINE CARCINOMA
     Dosage: 990 mg, qd
     Route: 048
  8. PARIET [Concomitant]
     Indication: PROPHYLAXIS
     Dosage: 10 mg, qd
     Route: 048
     Dates: start: 20111212
  9. ALLEGRA [Concomitant]
     Indication: PROPHYLAXIS
     Dosage: 120 mg, qd
     Route: 048
     Dates: start: 20111216

REACTIONS (1)
  - Constipation [Recovered/Resolved]
